FAERS Safety Report 14272115 (Version 1)
Quarter: 2017Q4

REPORT INFORMATION
  Report Type: Spontaneous
  Country: US (occurrence: US)
  Receive Date: 20171211
  Receipt Date: 20171211
  Transmission Date: 20180321
  Serious: Yes (Other)
  Sender: FDA-Public Use
  Company Number: US-OTSUKA-2016_003407

PATIENT
  Sex: Male

DRUGS (1)
  1. ABILIFY [Suspect]
     Active Substance: ARIPIPRAZOLE
     Indication: AUTISM SPECTRUM DISORDER
     Dosage: 10 MG, TID
     Route: 048

REACTIONS (4)
  - Drooling [Recovering/Resolving]
  - Intentional self-injury [Recovered/Resolved]
  - Weight increased [Recovering/Resolving]
  - Off label use [Unknown]
